FAERS Safety Report 6228885-7 (Version None)
Quarter: 2009Q2

REPORT INFORMATION
  Report Type: 
  Country: None (occurrence: None)
  Receive Date: 20090615
  Receipt Date: 20090611
  Transmission Date: 20091009
  Serious: Yes (Hospitalization)
  Sender: FDA-Public Use
  Company Number: AU-BRISTOL-MYERS SQUIBB COMPANY-14646509

PATIENT
  Age: 61 Year
  Sex: Male
  Weight: 64 kg

DRUGS (7)
  1. BLINDED: BRIVANIB ALANINATE [Suspect]
     Indication: COLORECTAL CANCER METASTATIC
     Dosage: CYCLE:5 WEEKS ;DOSE 4
     Route: 048
     Dates: start: 20090429
  2. CETUXIMAB [Suspect]
     Indication: COLORECTAL CANCER METASTATIC
     Dosage: CYCLE:5 WEEKS ;DOSE 4
     Route: 042
     Dates: start: 20090429
  3. BLINDED: PLACEBO [Suspect]
     Indication: COLORECTAL CANCER METASTATIC
     Route: 048
     Dates: start: 20090429
  4. ASPIRIN [Concomitant]
     Indication: PROPHYLAXIS
     Dates: start: 20090527
  5. FLUCONAZOLE [Concomitant]
     Indication: ORAL CANDIDIASIS
     Dates: start: 20090306
  6. FUNGILIN [Concomitant]
     Indication: ORAL CANDIDIASIS
     Dates: start: 20090306
  7. NEUROFEN PLUS [Concomitant]
     Indication: BACK PAIN
     Dates: start: 20090306

REACTIONS (1)
  - ALTERED STATE OF CONSCIOUSNESS [None]
